FAERS Safety Report 25607610 (Version 1)
Quarter: 2025Q3

REPORT INFORMATION
  Report Type: Spontaneous
  Country: US (occurrence: US)
  Receive Date: 20250725
  Receipt Date: 20250725
  Transmission Date: 20251020
  Serious: No
  Sender: ALEXION PHARMACEUTICALS
  Company Number: US-AstraZeneca-CH-00915961AP

PATIENT
  Sex: Female

DRUGS (1)
  1. BREZTRI [Suspect]
     Active Substance: BUDESONIDE\FORMOTEROL\GLYCOPYRROLATE
     Route: 065

REACTIONS (7)
  - Product cleaning inadequate [Unknown]
  - Incorrect dose administered [Unknown]
  - Dyspnoea [Unknown]
  - Device delivery system issue [Unknown]
  - Gait disturbance [Unknown]
  - Anaemia [Unknown]
  - Product use issue [Unknown]
